FAERS Safety Report 14929355 (Version 1)
Quarter: 2018Q2

REPORT INFORMATION
  Report Type: Spontaneous
  Country: US (occurrence: US)
  Receive Date: 20180504
  Receipt Date: 20180504
  Transmission Date: 20180711
  Serious: No
  Sender: FDA-Public Use
  Company Number: None

PATIENT
  Age: 59 Year
  Sex: Female

DRUGS (1)
  1. CAPECITABINE 500MG WESTWARD [Suspect]
     Active Substance: CAPECITABINE
     Indication: PANCREATIC CARCINOMA
     Route: 048
     Dates: start: 20171227

REACTIONS (5)
  - Nausea [None]
  - Decreased appetite [None]
  - Oral mucosal blistering [None]
  - Alopecia [None]
  - Underdose [None]

NARRATIVE: CASE EVENT DATE: 20180314
